FAERS Safety Report 11323724 (Version 2)
Quarter: 2015Q3

REPORT INFORMATION
  Report Type: Spontaneous
  Country: BR (occurrence: BR)
  Receive Date: 20150730
  Receipt Date: 20150804
  Transmission Date: 20151125
  Serious: Yes (Hospitalization, Other)
  Sender: FDA-Public Use
  Company Number: BR-JNJFOC-20150718741

PATIENT
  Age: 51 Year
  Sex: Female

DRUGS (5)
  1. DORENE [Concomitant]
     Indication: RHEUMATOID ARTHRITIS
     Route: 065
  2. PURAN [Concomitant]
     Active Substance: LEVOTHYROXINE SODIUM
     Route: 065
     Dates: start: 2012
  3. TIBOLONE [Concomitant]
     Active Substance: TIBOLONE
     Route: 065
     Dates: start: 2013
  4. REMICADE [Suspect]
     Active Substance: INFLIXIMAB
     Indication: RHEUMATOID ARTHRITIS
     Dosage: FIRST DOSE
     Route: 042
     Dates: start: 20150708
  5. DORENE [Concomitant]
     Indication: RHEUMATOID ARTHRITIS
     Route: 065

REACTIONS (6)
  - Inflammation [Recovered/Resolved]
  - Arthritis [Unknown]
  - Sepsis [Unknown]
  - Hypertension [Unknown]
  - Abasia [Recovered/Resolved]
  - Chills [Recovered/Resolved]

NARRATIVE: CASE EVENT DATE: 20150715
